FAERS Safety Report 4696856-8 (Version None)
Quarter: 2005Q2

REPORT INFORMATION
  Report Type: 
  Country: None (occurrence: None)
  Receive Date: 20050620
  Receipt Date: 20050609
  Transmission Date: 20051028
  Serious: Yes (Other)
  Sender: FDA-Public Use
  Company Number: 2005BH000255

PATIENT
  Sex: Female

DRUGS (1)
  1. PROMETHAZINE [Suspect]
     Indication: NAUSEA
     Dosage: IV
     Route: 042
     Dates: start: 20050526

REACTIONS (14)
  - ANXIETY [None]
  - DRUG HYPERSENSITIVITY [None]
  - DYSGEUSIA [None]
  - EYE ROLLING [None]
  - FLUSHING [None]
  - HYPOAESTHESIA [None]
  - INCORRECT DRUG ADMINISTRATION RATE [None]
  - INSOMNIA [None]
  - LOSS OF CONSCIOUSNESS [None]
  - NERVOUSNESS [None]
  - OXYGEN SATURATION DECREASED [None]
  - PALLOR [None]
  - RESPIRATORY RATE DECREASED [None]
  - TREMOR [None]
